FAERS Safety Report 14020511 (Version 3)
Quarter: 2017Q4

REPORT INFORMATION
  Report Type: Report from Study
  Country: None (occurrence: HU)
  Receive Date: 20170928
  Receipt Date: 20171106
  Transmission Date: 20180321
  Serious: Yes (Hospitalization, Other)
  Sender: FDA-Public Use
  Company Number: HU-ABBVIE-17K-076-2112141-00

PATIENT
  Age: 61 Year
  Sex: Female

DRUGS (11)
  1. DUODOPA [Suspect]
     Active Substance: CARBIDOPA\LEVODOPA
     Indication: PARKINSON^S DISEASE
     Dosage: MORNING DOSE 3.5ML; CONTINUOUS DOSE 2.0ML/H;EXTRA DOSE 1.6ML
     Route: 050
     Dates: start: 20150122
  2. FRONTIN [Concomitant]
     Active Substance: ALPRAZOLAM
     Indication: DEPRESSION
     Dosage: MORNING 0.5, NOON 0.5, EVENING 1 TABL
     Dates: start: 2009
  3. MADOPAR HBS [Concomitant]
     Active Substance: BENSERAZIDE HYDROCHLORIDE\LEVODOPA
     Indication: PARKINSON^S DISEASE
     Dosage: 2 TABLETS IN THE EVENING
     Dates: start: 2015
  4. PARNASSAN [Suspect]
     Active Substance: OLANZAPINE
     Indication: DEPRESSION
     Dosage: IN THE EVENING
     Route: 048
     Dates: start: 20170907, end: 201709
  5. MADOPAR [Concomitant]
     Active Substance: BENSERAZIDE HYDROCHLORIDE\LEVODOPA
     Indication: PARKINSON^S DISEASE
     Dosage: 1 TABLET AT NIGHT
     Dates: start: 2001
  6. APO-FAMOTIDINE [Concomitant]
     Active Substance: FAMOTIDINE
     Indication: PROPHYLAXIS
     Dosage: 1 TABLET IN THE MORNING
     Dates: start: 2011
  7. FRAXODI [Concomitant]
     Active Substance: NADROPARIN CALCIUM
     Indication: PRODUCT USED FOR UNKNOWN INDICATION
  8. MABTHERA [Concomitant]
     Active Substance: RITUXIMAB
     Indication: NON-HODGKIN^S LYMPHOMA
     Route: 042
     Dates: start: 20170825
  9. DUODOPA [Suspect]
     Active Substance: CARBIDOPA\LEVODOPA
     Route: 050
  10. PARNASSAN [Suspect]
     Active Substance: OLANZAPINE
     Dosage: DOSAGE DECREASED
     Route: 048
     Dates: start: 201709
  11. BETALOC [Concomitant]
     Active Substance: METOPROLOL TARTRATE
     Indication: TACHYCARDIA
     Dates: start: 2012

REACTIONS (21)
  - Anaemia [Recovered/Resolved]
  - Blood osmolarity decreased [Unknown]
  - Stoma site discharge [Not Recovered/Not Resolved]
  - Blood disorder [Unknown]
  - Dizziness postural [Not Recovered/Not Resolved]
  - Neuropathy peripheral [Unknown]
  - Leukopenia [Unknown]
  - Hypertension [Unknown]
  - Mobility decreased [Not Recovered/Not Resolved]
  - Sensory disturbance [Not Recovered/Not Resolved]
  - Decreased appetite [Recovering/Resolving]
  - Hyponatraemia [Recovered/Resolved]
  - Muscle tightness [Not Recovered/Not Resolved]
  - Atrophy [Unknown]
  - Drug ineffective [Unknown]
  - Hallucination [Recovered/Resolved]
  - Polyneuropathy [Unknown]
  - Tremor [Not Recovered/Not Resolved]
  - Feeling abnormal [Not Recovered/Not Resolved]
  - General physical health deterioration [Not Recovered/Not Resolved]
  - Stoma site discharge [Not Recovered/Not Resolved]

NARRATIVE: CASE EVENT DATE: 201501
